FAERS Safety Report 10381739 (Version 1)
Quarter: 2014Q1

REPORT INFORMATION
  Report Type: Spontaneous
  Country: US (occurrence: None)
  Receive Date: 20140306
  Receipt Date: 20140306
  Transmission Date: 20141002
  Serious: Yes (Hospitalization)
  Sender: FDA-Public Use
  Company Number: 163-21880-13090323

PATIENT
  Age: 97 Year
  Sex: Female

DRUGS (9)
  1. LOPERMIDE (LOPERAMIDE HYDROCHLORIDE) [Concomitant]
  2. CALCIUM CARBONATE [Concomitant]
  3. TUMS (CALCIUM CARBONATE) [Concomitant]
  4. NEXIUM (ESOMEPRAZOLE) [Concomitant]
  5. CARVEDILOL [Concomitant]
  6. MAPAP (PARACETAMOL) [Concomitant]
  7. LEVOTHYROXINE [Concomitant]
  8. SPIRONOLACTONE [Concomitant]
  9. REVLIMID [Suspect]
     Indication: MYELODYSPLASTIC SYNDROME
     Dosage: 14 IN 14 D
     Route: 048
     Dates: start: 20130529

REACTIONS (3)
  - Dehydration [None]
  - Diarrhoea [None]
  - Blood pressure decreased [None]
